FAERS Safety Report 7193893-9 (Version None)
Quarter: 2010Q4

REPORT INFORMATION
  Report Type: 
  Country: None (occurrence: None)
  Receive Date: 20101223
  Receipt Date: 20100913
  Transmission Date: 20110411
  Serious: No
  Sender: FDA-Public Use
  Company Number: US-AMGEN-KDL438071

PATIENT

DRUGS (1)
  1. ENBREL [Suspect]
     Indication: PSORIATIC ARTHROPATHY
     Dosage: 50 MG, QWK
     Route: 058
     Dates: start: 20060120

REACTIONS (6)
  - HEADACHE [None]
  - INJECTION SITE PAIN [None]
  - PSORIASIS [None]
  - RHINORRHOEA [None]
  - SECRETION DISCHARGE [None]
  - UPPER RESPIRATORY TRACT INFECTION [None]
